APPROVED DRUG PRODUCT: PENICILLIN V POTASSIUM
Active Ingredient: PENICILLIN V POTASSIUM
Strength: EQ 250MG BASE/5ML
Dosage Form/Route: FOR SOLUTION;ORAL
Application: A062981 | Product #002
Applicant: CHARTWELL RX SCIENCES LLC
Approved: Feb 10, 1989 | RLD: No | RS: No | Type: DISCN